FAERS Safety Report 19810282 (Version 1)
Quarter: 2021Q3

REPORT INFORMATION
  Report Type: Spontaneous
  Country: US (occurrence: US)
  Receive Date: 20210903
  Receipt Date: 20210903
  Transmission Date: 20211014
  Serious: Yes (Hospitalization)
  Sender: FDA-Public Use
  Company Number: None

PATIENT
  Age: 79 Year
  Sex: Male

DRUGS (3)
  1. CAPECITABINE 500MG TAB [Suspect]
     Active Substance: CAPECITABINE
     Indication: COLON CANCER
     Route: 048
     Dates: start: 20210826
  2. OXALIPATIN [Concomitant]
     Active Substance: OXALIPLATIN
  3. CAPECITABINE 150MG TAB [Suspect]
     Active Substance: CAPECITABINE
     Indication: COLON CANCER
     Route: 048
     Dates: start: 20210826

REACTIONS (3)
  - Therapy interrupted [None]
  - Aphasia [None]
  - Gait inability [None]

NARRATIVE: CASE EVENT DATE: 20210901
